FAERS Safety Report 7960314-5 (Version None)
Quarter: 2011Q4

REPORT INFORMATION
  Report Type: 
  Country: None (occurrence: None)
  Receive Date: 20111206
  Receipt Date: 20111206
  Transmission Date: 20120403
  Serious: Yes (Hospitalization)
  Sender: FDA-Public Use
  Company Number: PHHO2010PE07998

PATIENT
  Sex: Male
  Weight: 49 kg

DRUGS (1)
  1. AFINITOR [Suspect]
     Indication: METASTATIC GASTRIC CANCER
     Dosage: 10 MG, QD
     Route: 048
     Dates: start: 20100414, end: 20100521

REACTIONS (10)
  - GASTRIC MUCOSAL LESION [None]
  - DEHYDRATION [None]
  - HAEMOGLOBIN DECREASED [None]
  - GASTROINTESTINAL HAEMORRHAGE [None]
  - FAECES DISCOLOURED [None]
  - DIARRHOEA [None]
  - ASTHENIA [None]
  - MELAENA [None]
  - DECREASED APPETITE [None]
  - STOMATITIS [None]
